FAERS Safety Report 19902380 (Version 3)
Quarter: 2022Q1

REPORT INFORMATION
  Report Type: Spontaneous
  Country: US (occurrence: US)
  Receive Date: 20210930
  Receipt Date: 20220128
  Transmission Date: 20220423
  Serious: No
  Sender: FDA-Public Use
  Company Number: US-SA-SAC20210929000091

PATIENT
  Age: 52 Year
  Sex: Female

DRUGS (3)
  1. KEVZARA [Suspect]
     Active Substance: SARILUMAB
     Indication: Rheumatoid arthritis
     Dosage: 200 MG, QOW
     Route: 058
     Dates: start: 20210423
  2. VITAMIN D NOS [Concomitant]
     Active Substance: VITAMIN D NOS
  3. COBAMAMIDE [Concomitant]
     Active Substance: COBAMAMIDE

REACTIONS (2)
  - Tooth infection [Unknown]
  - White blood cell count decreased [Unknown]

NARRATIVE: CASE EVENT DATE: 20210101
